FAERS Safety Report 23959244 (Version 1)
Quarter: 2024Q2

REPORT INFORMATION
  Report Type: Spontaneous
  Country: US (occurrence: US)
  Receive Date: 20240611
  Receipt Date: 20240611
  Transmission Date: 20240715
  Serious: Yes (Other)
  Sender: FDA-Public Use
  Company Number: US-VELOXIS PHARMACEUTICALS, INC.-2024-VEL-00317

PATIENT
  Sex: Male

DRUGS (2)
  1. ENVARSUS XR [Suspect]
     Active Substance: TACROLIMUS
     Indication: Renal transplant
     Dosage: UNK, QD
  2. ENVARSUS XR [Suspect]
     Active Substance: TACROLIMUS
     Indication: Heart transplant

REACTIONS (5)
  - Kidney transplant rejection [Unknown]
  - Heart transplant rejection [Unknown]
  - Treatment noncompliance [Unknown]
  - Product use issue [Unknown]
  - Off label use [Unknown]
